FAERS Safety Report 4446752-6 (Version None)
Quarter: 2004Q3

REPORT INFORMATION
  Report Type: 
  Country: None (occurrence: None)
  Receive Date: 20040910
  Receipt Date: 20040825
  Transmission Date: 20050211
  Serious: Yes (Hospitalization)
  Sender: FDA-Public Use
  Company Number: THYR-10197

PATIENT
  Age: 44 Year
  Sex: Female

DRUGS (7)
  1. THYROGEN [Suspect]
     Indication: DIAGNOSTIC PROCEDURE
     Dosage: 0.9 MG QD IM
     Route: 030
     Dates: start: 20040823, end: 20040824
  2. LISINOPRIL [Concomitant]
  3. FLOVENT [Concomitant]
  4. PROZAC [Concomitant]
  5. ALBUTEROL [Concomitant]
  6. CLARITIN-D [Concomitant]
  7. AMERGE [Concomitant]

REACTIONS (4)
  - DIZZINESS [None]
  - IMPAIRED DRIVING ABILITY [None]
  - MYOCARDIAL INFARCTION [None]
  - PALPITATIONS [None]
